FAERS Safety Report 9974644 (Version 1)
Quarter: 2014Q1

REPORT INFORMATION
  Report Type: Report from Study
  Country: US (occurrence: US)
  Receive Date: 20140306
  Receipt Date: 20140306
  Transmission Date: 20141002
  Serious: No
  Sender: FDA-Public Use
  Company Number: US-ABBVIE-13P-163-1156586-00

PATIENT
  Age: 62 Year
  Sex: Female
  Weight: 81.72 kg

DRUGS (9)
  1. HUMIRA [Suspect]
     Indication: RHEUMATOID ARTHRITIS
     Route: 058
     Dates: start: 201308
  2. LASIX [Concomitant]
     Indication: FLUID RETENTION
     Route: 048
  3. SAVELLA [Concomitant]
     Indication: FIBROMYALGIA
     Route: 048
  4. ATENOLOL [Concomitant]
     Indication: HYPERTENSION
     Route: 048
     Dates: start: 2003
  5. GABAPENTIN [Concomitant]
     Indication: NEURALGIA
     Route: 048
  6. FLUCONAZOLE [Concomitant]
     Indication: PROPHYLAXIS
     Dates: start: 2012
  7. FLUCONAZOLE [Concomitant]
     Indication: FUNGAL INFECTION
  8. LUNESTA [Concomitant]
     Indication: INSOMNIA
     Route: 048
  9. TRAMADOL [Concomitant]
     Indication: PAIN
     Route: 048

REACTIONS (3)
  - Tongue dry [Not Recovered/Not Resolved]
  - Dry mouth [Not Recovered/Not Resolved]
  - Hot flush [Not Recovered/Not Resolved]
